FAERS Safety Report 6564355-4 (Version None)
Quarter: 2010Q1

REPORT INFORMATION
  Report Type: 
  Country: None (occurrence: None)
  Receive Date: 20100201
  Receipt Date: 20090420
  Transmission Date: 20100710
  Serious: Yes (Death)
  Sender: FDA-Public Use
  Company Number: US-JNJFOC-20080706285

PATIENT
  Sex: Female

DRUGS (8)
  1. LEVAQUIN [Suspect]
     Indication: BACTERIAL INFECTION
     Route: 065
  2. HYDROCHLOROTHIAZIDE [Concomitant]
     Route: 065
  3. LOPRESSOR [Concomitant]
  4. DIOVAN [Concomitant]
  5. NORVASC [Concomitant]
  6. GLIPIZIDE [Concomitant]
  7. POTASSIUM [Concomitant]
  8. INSULIN [Concomitant]

REACTIONS (5)
  - CLOSTRIDIAL INFECTION [None]
  - NERVOUS SYSTEM DISORDER [None]
  - NEUROPATHY PERIPHERAL [None]
  - RENAL FAILURE [None]
  - TENDON INJURY [None]
